FAERS Safety Report 10169746 (Version 2)
Quarter: 2014Q2

REPORT INFORMATION
  Report Type: Spontaneous
  Country: US (occurrence: US)
  Receive Date: 20140513
  Receipt Date: 20140513
  Transmission Date: 20141212
  Serious: Yes (Other)
  Sender: FDA-Public Use
  Company Number: US-MERCK-0301USA02148

PATIENT
  Sex: Female

DRUGS (5)
  1. FOSAMAX [Suspect]
     Indication: OSTEOPOROSIS
     Dosage: 70 MG, QW
     Route: 048
     Dates: start: 200209
  2. DILTIAZEM [Concomitant]
  3. CARDURA [Concomitant]
  4. LIPITOR [Concomitant]
  5. XANAX [Concomitant]

REACTIONS (2)
  - Femur fracture [Unknown]
  - Rash [Not Recovered/Not Resolved]
